FAERS Safety Report 20995817 (Version 4)
Quarter: 2022Q3

REPORT INFORMATION
  Report Type: Spontaneous
  Country: FR (occurrence: FR)
  Receive Date: 20220623
  Receipt Date: 20220808
  Transmission Date: 20221027
  Serious: Yes (Other)
  Sender: FDA-Public Use
  Company Number: FR-009507513-2206FRA000664

PATIENT
  Age: 64 Year
  Sex: Female
  Weight: 62 kg

DRUGS (6)
  1. CAPECITABINE [Suspect]
     Active Substance: CAPECITABINE
     Indication: Insulinoma
     Dosage: 6 CYCLES
     Route: 065
     Dates: start: 202006, end: 20201213
  2. CAPECITABINE [Suspect]
     Active Substance: CAPECITABINE
     Indication: Metastases to liver
     Dosage: REDUCED DOSE
     Route: 065
     Dates: start: 2021
  3. TEMOZOLOMIDE [Suspect]
     Active Substance: TEMOZOLOMIDE
     Indication: Insulinoma
     Dosage: 6 CYCLES
     Route: 065
     Dates: start: 202006, end: 20201213
  4. TEMOZOLOMIDE [Suspect]
     Active Substance: TEMOZOLOMIDE
     Indication: Metastases to liver
     Dosage: REDUCED DOSE
     Route: 065
     Dates: start: 2021
  5. DEXTROSE [Concomitant]
     Active Substance: DEXTROSE
     Indication: Hypoglycaemia
     Dosage: UNK
     Route: 065
     Dates: start: 201807
  6. PASIREOTIDE [Concomitant]
     Active Substance: PASIREOTIDE
     Indication: Insulinoma
     Dosage: 0.9 MILLIGRAM, TWO TIMES A DAY (EVERY 12H (SHORT ACTING))
     Route: 030
     Dates: start: 2019

REACTIONS (2)
  - Thrombocytopenia [Unknown]
  - Product use in unapproved indication [Unknown]

NARRATIVE: CASE EVENT DATE: 20200101
